FAERS Safety Report 18382643 (Version 1)
Quarter: 2020Q4

REPORT INFORMATION
  Report Type: Spontaneous
  Country: US (occurrence: US)
  Receive Date: 20201013
  Receipt Date: 20201013
  Transmission Date: 20210114
  Serious: Yes (Hospitalization)
  Sender: FDA-Public Use
  Company Number: None

PATIENT
  Age: 68 Year
  Sex: Female

DRUGS (9)
  1. HYDROMORPHON [Concomitant]
     Active Substance: HYDROMORPHONE
  2. METRONIDAZOL [Concomitant]
     Active Substance: METRONIDAZOLE
  3. SENNA PLUS [Concomitant]
     Active Substance: DOCUSATE SODIUM\SENNOSIDES\SENNOSIDES A AND B
  4. VOTRIENT [Suspect]
     Active Substance: PAZOPANIB HYDROCHLORIDE
     Indication: FOLLICULAR DENDRITIC CELL SARCOMA
     Route: 048
     Dates: start: 20190704
  5. ENOXAPARIN [Concomitant]
     Active Substance: ENOXAPARIN
  6. VITAMIN D [Concomitant]
     Active Substance: VITAMIN D NOS
  7. LEVOFLOXACIN. [Concomitant]
     Active Substance: LEVOFLOXACIN
  8. METOCLOPRAM [Concomitant]
     Active Substance: METOCLOPRAMIDE
  9. ONDANSETRON [Concomitant]
     Active Substance: ONDANSETRON

REACTIONS (2)
  - Surgery [None]
  - Therapy interrupted [None]

NARRATIVE: CASE EVENT DATE: 20200805
